FAERS Safety Report 5127704-X (Version None)
Quarter: 2006Q4

REPORT INFORMATION
  Report Type: 
  Country: None (occurrence: None)
  Receive Date: 20061016
  Receipt Date: 20061010
  Transmission Date: 20070319
  Serious: Yes (Life-Threatening, Hospitalization)
  Sender: FDA-Public Use
  Company Number: US-GLAXOSMITHKLINE-A0623429A

PATIENT
  Age: 47 Year
  Sex: Male

DRUGS (2)
  1. ADVAIR DISKUS 100/50 [Suspect]
     Indication: ASTHMA
     Dates: start: 20030711, end: 20060110
  2. SEREVENT [Suspect]
     Indication: ASTHMA
     Route: 055
     Dates: start: 19971111, end: 19991207

REACTIONS (6)
  - ASTHMA [None]
  - CYANOSIS [None]
  - DISABILITY [None]
  - DYSPNOEA [None]
  - LUNG HYPERINFLATION [None]
  - STATUS ASTHMATICUS [None]
